FAERS Safety Report 14260471 (Version 1)
Quarter: 2017Q4

REPORT INFORMATION
  Report Type: Spontaneous
  Country: US (occurrence: US)
  Receive Date: 20171207
  Receipt Date: 20171207
  Transmission Date: 20180321
  Serious: No
  Sender: FDA-Public Use
  Company Number: US-WALMART PREMIER BRANDS OF AMERICA-2036907

PATIENT
  Age: 58 Year
  Sex: Female
  Weight: 102.27 kg

DRUGS (2)
  1. EQUATE CORN AND CALLUS REMOVER [Suspect]
     Active Substance: SALICYLIC ACID
     Route: 061
     Dates: start: 20171030, end: 20171107
  2. TRIAMTERENE AND HYDROCHLOROTHIAZIDE [Concomitant]
     Active Substance: HYDROCHLOROTHIAZIDE\TRIAMTERENE
     Route: 048

REACTIONS (1)
  - Thermal burn [Recovering/Resolving]

NARRATIVE: CASE EVENT DATE: 20171030
